FAERS Safety Report 12645746 (Version 2)
Quarter: 2016Q3

REPORT INFORMATION
  Report Type: Spontaneous
  Country: US (occurrence: US)
  Receive Date: 20160811
  Receipt Date: 20160830
  Transmission Date: 20161109
  Serious: Yes (Hospitalization)
  Sender: FDA-Public Use
  Company Number: US-ACTELION-A-US2016-140383

PATIENT
  Age: 56 Year
  Sex: Female

DRUGS (6)
  1. ADCIRCA [Suspect]
     Active Substance: TADALAFIL
     Indication: PRODUCT USED FOR UNKNOWN INDICATION
     Dosage: 20 MG, QD
     Route: 065
  2. ADCIRCA [Suspect]
     Active Substance: TADALAFIL
     Dosage: 40 MG, QD
     Route: 065
  3. AMBRISENTAN [Suspect]
     Active Substance: AMBRISENTAN
     Indication: PULMONARY ARTERIAL HYPERTENSION
     Dosage: 5 MG, QD
     Route: 048
     Dates: start: 20160621
  4. UPTRAVI [Concomitant]
     Active Substance: SELEXIPAG
  5. AMBRISENTAN [Suspect]
     Active Substance: AMBRISENTAN
     Dosage: 10 MG, QD
     Route: 065
  6. VELETRI [Suspect]
     Active Substance: EPOPROSTENOL
     Indication: PULMONARY ARTERIAL HYPERTENSION
     Dosage: UNK
     Route: 042
     Dates: start: 201607, end: 201607

REACTIONS (4)
  - Therapy non-responder [Unknown]
  - Oxygen consumption increased [Not Recovered/Not Resolved]
  - Flushing [Recovered/Resolved]
  - Pulmonary arterial hypertension [Unknown]

NARRATIVE: CASE EVENT DATE: 201607
